FAERS Safety Report 5972284-X (Version None)
Quarter: 2008Q4

REPORT INFORMATION
  Report Type: 
  Country: None (occurrence: None)
  Receive Date: 20081201
  Receipt Date: 20080402
  Transmission Date: 20090506
  Serious: Yes (Other)
  Sender: FDA-Public Use
  Company Number: US-TEVA-169545USA

PATIENT
  Sex: Female
  Weight: 68.1 kg

DRUGS (2)
  1. SALBUTAMOL SULFATE INHALATION, 0.09 MG [Suspect]
     Dosage: 2 PUFFS EVERY 4 HOURS AS NEEDED
     Route: 055
     Dates: start: 20080330, end: 20080330
  2. BECLOMETHASONE DIPROPIONATE [Concomitant]

REACTIONS (4)
  - DYSPHAGIA [None]
  - PARAESTHESIA ORAL [None]
  - THROAT TIGHTNESS [None]
  - TONGUE DISORDER [None]
